FAERS Safety Report 6177319-X (Version None)
Quarter: 2009Q2

REPORT INFORMATION
  Report Type: 
  Country: None (occurrence: None)
  Receive Date: 20090504
  Receipt Date: 20090427
  Transmission Date: 20091009
  Serious: Yes (Hospitalization, Other)
  Sender: FDA-Public Use
  Company Number: US-BIOGENIDEC-2009BI001655

PATIENT
  Age: 46 Year
  Sex: Male
  Weight: 92 kg

DRUGS (3)
  1. AVONEX [Suspect]
     Indication: MULTIPLE SCLEROSIS
     Route: 030
     Dates: start: 20061201, end: 20060101
  2. AVONEX [Suspect]
     Route: 030
     Dates: start: 20081029, end: 20081215
  3. AVONEX [Suspect]
     Route: 030
     Dates: start: 20090401

REACTIONS (7)
  - ARNOLD-CHIARI MALFORMATION [None]
  - ARTHRALGIA [None]
  - BLOOD CHOLESTEROL INCREASED [None]
  - DRUG HYPERSENSITIVITY [None]
  - HEPATIC ENZYME INCREASED [None]
  - INFLUENZA LIKE ILLNESS [None]
  - TYPE 2 DIABETES MELLITUS [None]
